FAERS Safety Report 7320725-8 (Version None)
Quarter: 2011Q1

REPORT INFORMATION
  Report Type: 
  Country: None (occurrence: None)
  Receive Date: 20110228
  Receipt Date: 20110222
  Transmission Date: 20110831
  Serious: Yes (Other)
  Sender: FDA-Public Use
  Company Number: US-PFIZER INC-2010124269

PATIENT
  Sex: Male

DRUGS (7)
  1. ALBUTEROL [Concomitant]
     Indication: DYSPNOEA
  2. CHANTIX [Suspect]
     Indication: SMOKING CESSATION THERAPY
     Dosage: 1 MG  DAILY FOR THREE DAYS
     Route: 048
     Dates: start: 20080901, end: 20080101
  3. CHANTIX [Suspect]
     Dosage: 0.5 MG, 2X/DAY FOR 4 DAYS
     Dates: start: 20080101, end: 20080101
  4. ALBUTEROL [Concomitant]
     Indication: ASTHMA
  5. CHANTIX [Suspect]
     Dosage: 1 MG, 2X/DAY FOR 90 DAYS
     Dates: start: 20080101, end: 20090101
  6. ALBUTEROL [Concomitant]
     Indication: BRONCHIAL HYPERREACTIVITY
     Dosage: UNK
     Dates: start: 20080501, end: 20090401
  7. ALBUTEROL [Concomitant]
     Indication: RHINITIS ALLERGIC

REACTIONS (11)
  - AGGRESSION [None]
  - DEPRESSION [None]
  - SUICIDE ATTEMPT [None]
  - HOMICIDAL IDEATION [None]
  - INTENTIONAL OVERDOSE [None]
  - MENTAL DISORDER [None]
  - PANIC ATTACK [None]
  - PHYSICAL ASSAULT [None]
  - MANIA [None]
  - MULTIPLE INJURIES [None]
  - ANXIETY [None]
